FAERS Safety Report 5626460-6 (Version None)
Quarter: 2008Q1

REPORT INFORMATION
  Report Type: 
  Country: None (occurrence: None)
  Receive Date: 20080214
  Receipt Date: 20080204
  Transmission Date: 20080703
  Serious: Yes (Hospitalization, Other)
  Sender: FDA-Public Use
  Company Number: US-ELI_LILLY_AND_COMPANY-US200711005131

PATIENT
  Sex: Female

DRUGS (10)
  1. FORTEO [Suspect]
     Indication: RESORPTION BONE INCREASED
     Dates: start: 20060402, end: 20060501
  2. FORTEO [Suspect]
     Dates: start: 20060601, end: 20071116
  3. MULTIVITAMINS, COMBINATIONS [Concomitant]
     Indication: SUPPLEMENTATION THERAPY
     Dates: end: 20060501
  4. MULTIVITAMINS, COMBINATIONS [Concomitant]
     Dosage: UNK, UNK
     Dates: start: 20060501
  5. VITAMIN D [Concomitant]
     Indication: SUPPLEMENTATION THERAPY
     Dosage: 1200 MG, UNK
     Dates: end: 20060501
  6. VITAMIN D [Concomitant]
     Dosage: 800 IU, DAILY (1/D)
     Dates: start: 20060501
  7. CALCIUM [Concomitant]
     Dates: end: 20060501
  8. CALCIUM [Concomitant]
     Dosage: 1500 MG, DAILY (1/D)
  9. IMODIUM [Concomitant]
     Indication: DIARRHOEA
     Dosage: UNK, DAILY (1/D)
  10. ASPIRIN [Concomitant]
     Dosage: UNK, DAILY (1/D)

REACTIONS (11)
  - ANXIETY [None]
  - BLOOD CALCIUM INCREASED [None]
  - BLOOD CREATINE PHOSPHOKINASE INCREASED [None]
  - DIZZINESS [None]
  - HYPOTENSION [None]
  - MUSCLE SPASMS [None]
  - MYALGIA [None]
  - NAUSEA [None]
  - NON-CARDIAC CHEST PAIN [None]
  - SLEEP DISORDER [None]
  - SYNCOPE VASOVAGAL [None]
